FAERS Safety Report 10485264 (Version 2)
Quarter: 2014Q4

REPORT INFORMATION
  Report Type: Spontaneous
  Country: DK (occurrence: CH)
  Receive Date: 20140930
  Receipt Date: 20141027
  Transmission Date: 20150528
  Serious: Yes (Hospitalization)
  Sender: FDA-Public Use
  Company Number: CH-FRI-1000071084

PATIENT
  Sex: Female

DRUGS (34)
  1. TEMESTA [Concomitant]
     Active Substance: LORAZEPAM
     Indication: CONFUSIONAL STATE
     Dosage: 3 MG
     Route: 050
     Dates: start: 20140707, end: 20140707
  2. ESCITALOPRAM [Suspect]
     Active Substance: ESCITALOPRAM OXALATE
     Indication: DEPRESSION
     Dosage: 5 MG
     Route: 048
     Dates: start: 20140203, end: 20140223
  3. ESCITALOPRAM [Suspect]
     Active Substance: ESCITALOPRAM OXALATE
     Dosage: 15 MG
     Route: 048
     Dates: start: 20140707, end: 20140715
  4. DUROGESIC [Suspect]
     Active Substance: FENTANYL
     Indication: BACK PAIN
     Dosage: 12 MICROG/H 1X/3 DAYS
     Route: 061
     Dates: start: 20140520, end: 20140522
  5. DUROGESIC [Suspect]
     Active Substance: FENTANYL
     Dosage: 50 MICROG/H 1X/3DAYS
     Route: 061
     Dates: start: 20140525, end: 20140711
  6. MADOPAR [Suspect]
     Active Substance: BENSERAZIDE HYDROCHLORIDE\LEVODOPA
     Dosage: 1000 MG
     Route: 048
     Dates: start: 20140601
  7. ASPIRINE [Concomitant]
     Active Substance: ASPIRIN
     Indication: CARDIOVASCULAR EVENT PROPHYLAXIS
     Dosage: 100 MG
     Route: 048
     Dates: end: 20140809
  8. MORPHINE HCL [Concomitant]
     Active Substance: MORPHINE HYDROCHLORIDE
     Indication: BACK PAIN
     Dosage: 30 MG
     Route: 048
     Dates: start: 20140513, end: 20140809
  9. DAFALGAN [Concomitant]
     Active Substance: ACETAMINOPHEN
     Indication: BACK PAIN
     Dosage: 1500 MG
     Route: 048
     Dates: start: 20140511, end: 20140714
  10. CONCOR [Concomitant]
     Active Substance: BISOPROLOL FUMARATE
     Indication: ESSENTIAL HYPERTENSION
     Dosage: 2.5 MG
     Route: 048
     Dates: start: 20140526, end: 20140707
  11. MONURIL [Concomitant]
     Active Substance: FOSFOMYCIN SODIUM
     Indication: URINARY TRACT INFECTION
     Dosage: 3 G
     Route: 048
     Dates: start: 20140612, end: 20140613
  12. MIDAZOLAM [Concomitant]
     Active Substance: MIDAZOLAM\MIDAZOLAM HYDROCHLORIDE
     Indication: AGITATION
     Dosage: 1.5 MG
     Route: 040
     Dates: start: 20140710, end: 20140710
  13. LYRICA [Concomitant]
     Active Substance: PREGABALIN
     Indication: NEURALGIA
     Dosage: 50 MG
     Route: 048
     Dates: start: 20140510, end: 20140522
  14. GLUCOPHAGE [Concomitant]
     Active Substance: METFORMIN HYDROCHLORIDE
     Indication: DIABETES MELLITUS
     Dosage: 1000 MG (IN ADDITION: 500 MG DAILY)
     Route: 048
     Dates: start: 20140510, end: 20140619
  15. AMLODIPINE [Concomitant]
     Active Substance: AMLODIPINE BESYLATE
     Indication: ESSENTIAL HYPERTENSION
     Dosage: 5 MG
     Route: 048
     Dates: end: 20140619
  16. ESCITALOPRAM [Suspect]
     Active Substance: ESCITALOPRAM OXALATE
     Dosage: 10 MG
     Route: 048
     Dates: start: 20140716, end: 20140723
  17. DUROGESIC [Suspect]
     Active Substance: FENTANYL
     Dosage: 25 MICROG/H 1X/3 DAYS
     Route: 061
     Dates: start: 20140711
  18. MOTILIUM [Concomitant]
     Active Substance: DOMPERIDONE
     Indication: DYSPEPSIA
     Dosage: 30 MG
     Route: 048
     Dates: start: 20140511, end: 20140527
  19. NITRODERM [Concomitant]
     Active Substance: NITROGLYCERIN
     Indication: ANGINA PECTORIS
     Dosage: 10 MG
     Route: 003
     Dates: start: 20140521, end: 20140718
  20. ESCITALOPRAM [Suspect]
     Active Substance: ESCITALOPRAM OXALATE
     Dosage: 10 MG
     Route: 048
     Dates: start: 20140224, end: 20140513
  21. ESCITALOPRAM [Suspect]
     Active Substance: ESCITALOPRAM OXALATE
     Indication: DEPRESSION
     Dosage: 20 MG
     Route: 048
     Dates: start: 20140514, end: 20140706
  22. DUROGESIC [Suspect]
     Active Substance: FENTANYL
     Dosage: 25 MICROG/H 1X/3 DAYS
     Route: 061
     Dates: start: 20140522
  23. DUROGESIC [Suspect]
     Active Substance: FENTANYL
     Route: 061
     Dates: end: 20140801
  24. TEMESTA [Concomitant]
     Active Substance: LORAZEPAM
     Indication: AGITATION
     Dosage: 0.5 MG
     Route: 048
     Dates: start: 20140604, end: 20140712
  25. ZOFRAN [Concomitant]
     Active Substance: ONDANSETRON HYDROCHLORIDE
     Indication: NAUSEA
     Dosage: 12 MG
     Route: 048
     Dates: start: 20140526, end: 20140530
  26. FURADANTINE [Concomitant]
     Active Substance: NITROFURANTOIN
     Indication: URINARY TRACT INFECTION
     Dosage: 300 MG
     Route: 048
     Dates: start: 20140708, end: 20140713
  27. QUETIAPINE [Concomitant]
     Active Substance: QUETIAPINE
     Indication: AGITATION
     Dosage: 6 MG
     Route: 048
     Dates: start: 20140714, end: 20140723
  28. HALDOL [Concomitant]
     Active Substance: HALOPERIDOL
     Indication: AGITATION
     Dosage: 1 MG
     Route: 050
     Dates: start: 20140707, end: 20140713
  29. MADOPAR [Suspect]
     Active Substance: BENSERAZIDE HYDROCHLORIDE\LEVODOPA
     Indication: PARKINSON^S DISEASE
     Dosage: 500 MG
     Route: 048
     Dates: start: 20140510
  30. MADOPAR [Suspect]
     Active Substance: BENSERAZIDE HYDROCHLORIDE\LEVODOPA
     Dosage: 500 MG
     Route: 048
     Dates: start: 20140716
  31. MADOPAR [Suspect]
     Active Substance: BENSERAZIDE HYDROCHLORIDE\LEVODOPA
     Route: 048
     Dates: end: 20140801
  32. LAXOBERON [Concomitant]
     Active Substance: SODIUM PICOSULFATE
     Indication: CONSTIPATION
     Dosage: 5 MG
     Route: 048
     Dates: start: 20140718, end: 20140801
  33. ANEXATE [Concomitant]
     Active Substance: FLUMAZENIL
     Indication: SEDATION
     Dosage: 0.4 MG
     Route: 050
     Dates: start: 20140707, end: 20140708
  34. TEMESTA [Concomitant]
     Active Substance: LORAZEPAM
     Indication: ANXIETY
     Dosage: 1 MG DAILY, AT THE END OF HER LIFE, INCREASED UP TO 3 MG DAILY
     Route: 050
     Dates: start: 20140730, end: 20140809

REACTIONS (3)
  - Confusional state [Not Recovered/Not Resolved]
  - Psychomotor hyperactivity [Not Recovered/Not Resolved]
  - Antidepressant drug level increased [Unknown]

NARRATIVE: CASE EVENT DATE: 20140527
